FAERS Safety Report 17658686 (Version 1)
Quarter: 2020Q2

REPORT INFORMATION
  Report Type: Spontaneous
  Country: US (occurrence: US)
  Receive Date: 20200412
  Receipt Date: 20200412
  Transmission Date: 20200713
  Serious: No
  Sender: FDA-Public Use
  Company Number: US-SA-2020SA093088

PATIENT
  Sex: Female

DRUGS (4)
  1. CITALOPRAM [Concomitant]
     Active Substance: CITALOPRAM HYDROBROMIDE
  2. ALPRAZOLAM. [Concomitant]
     Active Substance: ALPRAZOLAM
  3. BUPROPION. [Concomitant]
     Active Substance: BUPROPION
  4. DUPIXENT [Suspect]
     Active Substance: DUPILUMAB
     Indication: DERMATITIS ATOPIC
     Dosage: 300 MG, QOW, SDV
     Route: 058
     Dates: start: 20180926

REACTIONS (2)
  - Rhinorrhoea [Not Recovered/Not Resolved]
  - Seasonal allergy [Not Recovered/Not Resolved]

NARRATIVE: CASE EVENT DATE: 2020
